FAERS Safety Report 21983243 (Version 2)
Quarter: 2023Q1

REPORT INFORMATION
  Report Type: Report from Study
  Country: DE (occurrence: DE)
  Receive Date: 20230213
  Receipt Date: 20230224
  Transmission Date: 20230418
  Serious: Yes (Other)
  Sender: FDA-Public Use
  Company Number: DE-INSMED, INC.-2022-00205-DE

PATIENT
  Age: 70 Year
  Sex: Female

DRUGS (7)
  1. ARIKAYCE [Suspect]
     Active Substance: AMIKACIN
     Indication: Atypical mycobacterial infection
     Dosage: 590 MILLIGRAM, QD
     Route: 055
     Dates: start: 20220119, end: 202209
  2. ARIKAYCE [Suspect]
     Active Substance: AMIKACIN
     Dosage: 590 MILLIGRAM, QD
     Route: 055
     Dates: start: 20221023
  3. COVID-19 VACCINE NOS [Suspect]
     Active Substance: COVID-19 VACCINE NOS
     Indication: COVID-19
     Dosage: FIFTH DOSE
     Route: 065
     Dates: start: 20230126, end: 20230126
  4. COVID-19 VACCINE [Concomitant]
     Indication: COVID-19
     Dosage: FIRST DOSE
     Route: 065
  5. COVID-19 VACCINE [Concomitant]
     Dosage: SECOND DOSE
     Route: 065
  6. COVID-19 VACCINE [Concomitant]
     Dosage: THIRD DOSE
     Route: 065
  7. COVID-19 VACCINE [Concomitant]
     Dosage: FOURTH DOUSE
     Route: 065

REACTIONS (32)
  - Rib fracture [Recovering/Resolving]
  - Eye operation [Not Recovered/Not Resolved]
  - Increased bronchial secretion [Not Recovered/Not Resolved]
  - Listless [Not Recovered/Not Resolved]
  - Anosmia [Recovered/Resolved]
  - Anosmia [Not Recovered/Not Resolved]
  - Ageusia [Recovered/Resolved]
  - Ageusia [Not Recovered/Not Resolved]
  - Migraine [Recovered/Resolved]
  - Migraine [Not Recovered/Not Resolved]
  - Sluggishness [Recovered/Resolved]
  - Cystitis [Not Recovered/Not Resolved]
  - Chills [Recovered/Resolved]
  - Dyspnoea exertional [Not Recovered/Not Resolved]
  - Dysgeusia [Recovered/Resolved]
  - Dysgeusia [Recovered/Resolved]
  - Headache [Recovered/Resolved]
  - Headache [Not Recovered/Not Resolved]
  - Throat irritation [Recovered/Resolved]
  - Throat irritation [Recovered/Resolved]
  - Dizziness [Recovered/Resolved]
  - Dizziness [Not Recovered/Not Resolved]
  - Cough [Recovered/Resolved]
  - Cough [Recovering/Resolving]
  - Fatigue [Recovered/Resolved]
  - Fatigue [Not Recovered/Not Resolved]
  - Dysphonia [Recovering/Resolving]
  - Oropharyngeal pain [Not Recovered/Not Resolved]
  - Asthenia [Not Recovered/Not Resolved]
  - Asthenia [Recovered/Resolved]
  - Therapy interrupted [Unknown]
  - Device breakage [Unknown]

NARRATIVE: CASE EVENT DATE: 20220101
